FAERS Safety Report 13154088 (Version 1)
Quarter: 2017Q1

REPORT INFORMATION
  Report Type: Report from Study
  Country: US (occurrence: US)
  Receive Date: 20170126
  Receipt Date: 20170126
  Transmission Date: 20170428
  Serious: No
  Sender: FDA-Public Use
  Company Number: US-AMGEN-USASL2016108845

PATIENT
  Age: 70 Year
  Sex: Male

DRUGS (2)
  1. DEXAMETHASONE. [Concomitant]
     Active Substance: DEXAMETHASONE
     Dosage: UNK
  2. KYPROLIS [Suspect]
     Active Substance: CARFILZOMIB
     Indication: PLASMA CELL MYELOMA
     Dosage: UNK UNK, 2 TIMES/WK FOR 3 WEEKS FOLLOWED BY 1 WEEK OFF
     Route: 065
     Dates: start: 2016, end: 201607

REACTIONS (6)
  - Platelet count decreased [Unknown]
  - Blood immunoglobulin A increased [Unknown]
  - Diarrhoea [Unknown]
  - Disease progression [Unknown]
  - Blood calcium increased [Unknown]
  - Drug ineffective [Unknown]

NARRATIVE: CASE EVENT DATE: 2016
